FAERS Safety Report 8403495-1 (Version None)
Quarter: 2012Q2

REPORT INFORMATION
  Report Type: 
  Country: None (occurrence: None)
  Receive Date: 20120601
  Receipt Date: 20120523
  Transmission Date: 20120825
  Serious: Yes (Other)
  Sender: FDA-Public Use
  Company Number: PHHO2012GB003504

PATIENT
  Sex: Male
  Weight: 93.2 kg

DRUGS (2)
  1. TERBINAFINE HCL [Suspect]
     Indication: NAIL INFECTION
     Dosage: 250 MG, UNK
     Dates: start: 20120208, end: 20120214
  2. ILARIS [Suspect]
     Indication: TUMOUR NECROSIS FACTOR RECEPTOR-ASSOCIATED PERIODIC SYNDROME
     Dosage: 150 MG, UNK
     Dates: start: 20110303

REACTIONS (1)
  - HYPERTRIGLYCERIDAEMIA [None]
